FAERS Safety Report 6908492-0 (Version None)
Quarter: 2010Q3

REPORT INFORMATION
  Report Type: 
  Country: None (occurrence: None)
  Receive Date: 20100805
  Receipt Date: 20100723
  Transmission Date: 20110219
  Serious: Yes (Hospitalization)
  Sender: FDA-Public Use
  Company Number: JP-PFIZER INC-2010092754

PATIENT
  Age: 96 Year
  Sex: Male

DRUGS (1)
  1. LYRICA [Suspect]
     Dosage: 75 MG, DAILY
     Route: 048

REACTIONS (5)
  - COORDINATION ABNORMAL [None]
  - HYPOAESTHESIA [None]
  - HYPOAESTHESIA ORAL [None]
  - MUSCULAR WEAKNESS [None]
  - SPINAL OSTEOARTHRITIS [None]
